FAERS Safety Report 6982504-0 (Version None)
Quarter: 2010Q3

REPORT INFORMATION
  Report Type: 
  Country: None (occurrence: None)
  Receive Date: 20100914
  Receipt Date: 20100201
  Transmission Date: 20110219
  Serious: No
  Sender: FDA-Public Use
  Company Number: US-PFIZER INC-2010013207

PATIENT
  Age: 68 Year
  Sex: Female
  Weight: 104 kg

DRUGS (5)
  1. LYRICA [Suspect]
     Dosage: UNK
  2. ANASTROZOLE [Concomitant]
     Dosage: UNK
  3. CARDIZEM [Concomitant]
     Dosage: UNK
  4. CRESTOR [Concomitant]
     Dosage: UNK
  5. ACETYLSALICYLIC ACID [Concomitant]
     Dosage: UNK

REACTIONS (1)
  - AGEUSIA [None]
